FAERS Safety Report 21752532 (Version 1)
Quarter: 2022Q4

REPORT INFORMATION
  Report Type: Spontaneous
  Country: DE (occurrence: DE)
  Receive Date: 20221220
  Receipt Date: 20221220
  Transmission Date: 20230112
  Serious: Yes (Disabling, Other)
  Sender: FDA-Public Use
  Company Number: DE-ALKEM LABORATORIES LIMITED-DE-ALKEM-2022-07865

PATIENT
  Age: 23 Year
  Sex: Female
  Weight: 72 kg

DRUGS (5)
  1. MYCOPHENOLATE MOFETIL [Suspect]
     Active Substance: MYCOPHENOLATE MOFETIL
     Indication: Dermatomyositis
     Dosage: UNK
     Route: 065
     Dates: start: 20210111, end: 20220302
  2. DAZUKIBART [Suspect]
     Active Substance: DAZUKIBART
     Indication: Dermatomyositis
     Dosage: UNK
     Route: 065
     Dates: start: 20220105, end: 20220105
  3. CHOLECALCIFEROL [Concomitant]
     Active Substance: CHOLECALCIFEROL
     Indication: Dermatomyositis
     Dosage: UNK
     Route: 065
     Dates: start: 20211215
  4. HUMAN IMMUNOGLOBULIN G [Concomitant]
     Active Substance: HUMAN IMMUNOGLOBULIN G
     Indication: Dermatomyositis
     Dosage: UNK
     Route: 065
     Dates: start: 20220117, end: 20220121
  5. PREDNISOLONE ACETATE [Concomitant]
     Active Substance: PREDNISOLONE ACETATE
     Indication: Dermatomyositis
     Dosage: UNK
     Route: 065
     Dates: start: 20211215

REACTIONS (1)
  - Leukopenia [Not Recovered/Not Resolved]

NARRATIVE: CASE EVENT DATE: 20220217
